FAERS Safety Report 23617064 (Version 1)
Quarter: 2024Q1

REPORT INFORMATION
  Report Type: Spontaneous
  Country: US (occurrence: US)
  Receive Date: 20240311
  Receipt Date: 20240311
  Transmission Date: 20240410
  Serious: Yes (Hospitalization, Other)
  Sender: FDA-Public Use
  Company Number: US-BRISTOL-MYERS SQUIBB COMPANY-2024-036313

PATIENT
  Age: 92 Year
  Sex: Female
  Weight: 50.35 kg

DRUGS (1)
  1. LENALIDOMIDE [Suspect]
     Active Substance: LENALIDOMIDE
     Indication: Plasma cell myeloma
     Dates: start: 20230814

REACTIONS (2)
  - Pneumonia [Recovering/Resolving]
  - Haematological infection [Recovering/Resolving]

NARRATIVE: CASE EVENT DATE: 20240101
